FAERS Safety Report 9407731 (Version 1)
Quarter: 2013Q1

REPORT INFORMATION
  Report Type: Spontaneous
  Country: FR (occurrence: None)
  Receive Date: 20130212
  Receipt Date: 20130212
  Transmission Date: 20140127
  Serious: Yes (Hospitalization)
  Sender: FDA-Public Use
  Company Number: ENT 2013-0031

PATIENT
  Age: 82 Year
  Sex: Female

DRUGS (6)
  1. COMTAN (ENTACAPONE) [Suspect]
     Route: 048
     Dates: start: 2001, end: 201111
  2. RIVOTRIL [Concomitant]
  3. GUTRON [Concomitant]
  4. DOLIPRANE [Concomitant]
  5. SPASFON [Concomitant]
  6. CARBOLEVURE [Concomitant]

REACTIONS (10)
  - Hallucination, visual [None]
  - Disorientation [None]
  - Confusional state [None]
  - Gastrointestinal motility disorder [None]
  - Abdominal pain [None]
  - Decreased appetite [None]
  - General physical health deterioration [None]
  - Weight decreased [None]
  - Resting tremor [None]
  - Hypokinesia [None]
